FAERS Safety Report 10025206 (Version 2)
Quarter: 2014Q2

REPORT INFORMATION
  Report Type: Spontaneous
  Country: US (occurrence: None)
  Receive Date: 20140318
  Receipt Date: 20140403
  Transmission Date: 20141212
  Serious: Yes (Hospitalization)
  Sender: FDA-Public Use
  Company Number: AUR-APL-2014-02844

PATIENT
  Age: 66 Year
  Sex: Male
  Weight: 106.1 kg

DRUGS (12)
  1. HYDROCHLOROTHIAZIDE (HYDROCHLOROTHIAZIDE) [Suspect]
     Indication: PRODUCT USED FOR UNKNOWN INDICATION
  2. LOSARTAN (LOSARTAN) [Suspect]
     Indication: PRODUCT USED FOR UNKNOWN INDICATION
  3. ONDANSETRON (ONDANSETRON) [Suspect]
     Indication: PRODUCT USED FOR UNKNOWN INDICATION
     Dates: start: 20130906
  4. VARENICLINE TARTRATE (VARENICLINE TARTRATE) [Suspect]
     Indication: SMOKING CESSATION THERAPY
     Route: 048
     Dates: start: 20130926, end: 20130928
  5. CARBOPLATIN (CARBOPLATIN) [Suspect]
     Indication: PRODUCT USED FOR UNKNOWN INDICATION
     Dates: start: 20130906
  6. FOLIC ACID (FOLIC ACID) [Suspect]
     Indication: PRODUCT USED FOR UNKNOWN INDICATION
     Dates: start: 20130906
  7. VITAMIN B12 (CYANOCOBALAMIN) [Suspect]
     Indication: PRODUCT USED FOR UNKNOWN INDICATION
     Dosage: 1000 MCG, 1 IN 9 WK
     Dates: start: 20130906
  8. LORAZEPAM (LORAZEPAM) [Suspect]
     Indication: PRODUCT USED FOR UNKNOWN INDICATION
     Dates: start: 20130906
  9. SENNOSIDES-DOCUSATE SODIUM [Suspect]
     Indication: PRODUCT USED FOR UNKNOWN INDICATION
     Dosage: 2 DF (DOCUSATE SODIUM 50MG/SENNOSIDES A+B 8.6 MG)
     Dates: start: 20130906
  10. CALCIUM CARBONATE - VITAMIN D [Suspect]
     Indication: PRODUCT USED FOR UNKNOWN INDICATION
     Dosage: 8 DOSAGE FORMS (2 DOSAGE FORMS, 4 IN 1 D)
     Dates: start: 20130708
  11. DEXAMETHASONE SODIUM PHOSPHATE [Suspect]
     Indication: PRODUCT USED FOR UNKNOWN INDICATION
     Dosage: 8 MG (4 MG, 2 IN 1 D)
     Dates: start: 20130906
  12. PEMETREXED [Suspect]
     Indication: PRODUCT USED FOR UNKNOWN INDICATION
     Dosage: 23.8095 MG/M2 (500 MG/M2, 1 IN 3 WK)
     Dates: start: 20130906

REACTIONS (3)
  - Confusional state [None]
  - Hypercalcaemia [None]
  - Pneumonia [None]
